FAERS Safety Report 11287560 (Version 4)
Quarter: 2018Q2

REPORT INFORMATION
  Report Type: Report from Study
  Country: KR (occurrence: KR)
  Receive Date: 20150721
  Receipt Date: 20180508
  Transmission Date: 20180711
  Serious: Yes (Death, Hospitalization)
  Sender: FDA-Public Use
  Company Number: KR-SA-2015SA053810

PATIENT
  Age: 7 Year
  Sex: Female
  Weight: 22 kg

DRUGS (111)
  1. ADELAVIN [Concomitant]
     Dates: start: 20150701, end: 20150714
  2. COTRIM [Concomitant]
     Active Substance: SULFAMETHOXAZOLE\TRIMETHOPRIM
     Dosage: IVF
     Dates: start: 20150626
  3. CURAN [Concomitant]
     Active Substance: RANITIDINE HYDROCHLORIDE
     Dosage: IVF
     Dates: start: 20150627, end: 20150628
  4. CURAN [Concomitant]
     Active Substance: RANITIDINE HYDROCHLORIDE
     Dates: start: 20150630, end: 20150714
  5. KYNEX [Concomitant]
     Active Substance: SULFAMETHOXYPYRIDAZINE
     Dosage: IVF
     Dates: start: 20150703, end: 20150704
  6. CLOFARABINE. [Suspect]
     Active Substance: CLOFARABINE
     Indication: ACUTE LYMPHOCYTIC LEUKAEMIA
     Dosage: DOSE: 32 MG D1-D3, 24 MG D4
     Route: 065
     Dates: start: 20150513, end: 20150516
  7. CYCLOPHOSPHAMIDE. [Suspect]
     Active Substance: CYCLOPHOSPHAMIDE
     Indication: ACUTE LYMPHOCYTIC LEUKAEMIA
     Dosage: DOSE: 352 MG D1-D3, 264 MG D4
     Route: 065
     Dates: start: 20150513, end: 20150516
  8. MORPHINE SULFATE. [Concomitant]
     Active Substance: MORPHINE SULFATE
     Dates: start: 20150702, end: 20150708
  9. SOLONDO [Concomitant]
     Active Substance: PREDNISOLONE
     Indication: HORMONE REPLACEMENT THERAPY
     Route: 048
     Dates: start: 20150410, end: 20150412
  10. SOLONDO [Concomitant]
     Active Substance: PREDNISOLONE
     Indication: HORMONE REPLACEMENT THERAPY
     Route: 048
     Dates: start: 20150619, end: 20150620
  11. NYSTATIN. [Concomitant]
     Active Substance: NYSTATIN
     Indication: ANTI-INFECTIVE THERAPY
     Dosage: SUSPENSION
     Route: 048
     Dates: start: 20150410
  12. CANCIDAS [Concomitant]
     Active Substance: CASPOFUNGIN ACETATE
     Indication: ANTI-INFECTIVE THERAPY
     Dosage: IVF
     Dates: start: 20150619
  13. LASIX [Concomitant]
     Active Substance: FUROSEMIDE
     Indication: DIURETIC THERAPY
     Dosage: IVF
     Dates: start: 20150621, end: 20150626
  14. PENIRAMIN [Concomitant]
     Indication: ANTIALLERGIC THERAPY
     Dates: start: 20150630, end: 20150709
  15. ONSERAN [Concomitant]
     Indication: ANTIEMETIC SUPPORTIVE CARE
     Dosage: IVF
     Dates: start: 20150619, end: 20150621
  16. SMECTA [Concomitant]
     Active Substance: MONTMORILLONITE
     Indication: GASTROINTESTINAL DISORDER
     Route: 048
     Dates: start: 20150619
  17. PHOSTEN [Concomitant]
     Dosage: IVF
     Dates: start: 20150629, end: 20150703
  18. NEUTROGIN [Concomitant]
     Active Substance: LENOGRASTIM
     Indication: COLONY STIMULATING FACTOR PROPHYLAXIS
     Dates: start: 20150630, end: 20150714
  19. TAGAMET [Concomitant]
     Active Substance: CIMETIDINE
     Indication: ULCER
     Route: 048
     Dates: start: 20150619, end: 20150622
  20. PENIRAMIN [Concomitant]
     Indication: ANTIALLERGIC THERAPY
     Dates: start: 20150630, end: 20150709
  21. RHINATHIOL [Concomitant]
     Active Substance: CARBOCYSTEINE
     Indication: PRODUCTIVE COUGH
     Route: 048
     Dates: start: 20150410, end: 20150411
  22. LASIX [Concomitant]
     Active Substance: FUROSEMIDE
     Indication: DIURETIC THERAPY
     Dates: start: 20150630, end: 20150713
  23. LASIX [Concomitant]
     Active Substance: FUROSEMIDE
     Indication: DIURETIC THERAPY
     Dates: start: 20150710, end: 20150710
  24. PENIRAMIN [Concomitant]
     Indication: ANTIALLERGIC THERAPY
     Route: 048
     Dates: start: 20150422
  25. COUGH AND COLD PREPARATIONS [Concomitant]
     Active Substance: UNSPECIFIED INGREDIENT
     Indication: PRODUCTIVE COUGH
     Route: 048
     Dates: start: 20150414, end: 20150422
  26. ENDOXAN [Concomitant]
     Active Substance: CYCLOPHOSPHAMIDE
     Indication: NEOPLASM MALIGNANT
     Dosage: IVF
     Dates: start: 20150621, end: 20150621
  27. MEGACE [Concomitant]
     Active Substance: MEGESTROL ACETATE
     Dosage: SUSPENSION
     Route: 048
     Dates: start: 20150619, end: 20150626
  28. PHOSTEN [Concomitant]
     Dosage: IVF
     Dates: start: 20150704, end: 20150714
  29. LOPERAMIDE [Concomitant]
     Active Substance: LOPERAMIDE
     Route: 048
     Dates: start: 20150626, end: 20150627
  30. MASI [Concomitant]
     Indication: SEIZURE
     Dates: start: 20150703, end: 20150706
  31. CLOFARABINE. [Suspect]
     Active Substance: CLOFARABINE
     Indication: ACUTE LYMPHOCYTIC LEUKAEMIA
     Route: 041
     Dates: start: 20150621, end: 20150621
  32. ETOPOSIDE. [Suspect]
     Active Substance: ETOPOSIDE
     Indication: ACUTE LYMPHOCYTIC LEUKAEMIA
     Dosage: DOSE: 100 MG/M2= 82 MG D1-D2, 65 MG D3
     Route: 041
     Dates: start: 20150619, end: 20150620
  33. VENTOLIN [Concomitant]
     Active Substance: ALBUTEROL SULFATE
     Indication: PRODUCTIVE COUGH
     Dosage: 1 PACK TID DRN
     Dates: start: 20150630, end: 20150711
  34. SOLONDO [Concomitant]
     Active Substance: PREDNISOLONE
     Indication: HORMONE REPLACEMENT THERAPY
     Route: 048
     Dates: start: 20150413, end: 20150415
  35. CANCIDAS [Concomitant]
     Active Substance: CASPOFUNGIN ACETATE
     Indication: ANTI-INFECTIVE THERAPY
     Dates: start: 20150410
  36. CEFPIRAN [Concomitant]
     Indication: ANTIBIOTIC THERAPY
     Dosage: IVF
     Dates: start: 20150414, end: 20150417
  37. MACPERAN [Concomitant]
     Active Substance: METOCLOPRAMIDE HYDROCHLORIDE
     Indication: GASTROINTESTINAL DISORDER
     Dosage: IVF
     Dates: start: 20150619, end: 20150625
  38. SMECTA [Concomitant]
     Active Substance: MONTMORILLONITE
     Indication: GASTROINTESTINAL DISORDER
     Route: 048
     Dates: start: 20150626, end: 20150627
  39. ADELAVIN [Concomitant]
     Dosage: IVF
     Dates: start: 20150622
  40. ALBUMIN [Concomitant]
     Active Substance: ALBUMIN HUMAN
     Dosage: IVF
     Dates: start: 20150626, end: 20150708
  41. ETOPOSIDE. [Suspect]
     Active Substance: ETOPOSIDE
     Indication: ACUTE LYMPHOCYTIC LEUKAEMIA
     Dosage: DOSE: 80 MG D1-D3, 60 MG D4
     Route: 065
     Dates: start: 20150513, end: 20150516
  42. ETOPOSIDE. [Suspect]
     Active Substance: ETOPOSIDE
     Indication: ACUTE LYMPHOCYTIC LEUKAEMIA
     Route: 041
     Dates: start: 20150621, end: 20150621
  43. TAPOCIN [Concomitant]
     Indication: ANTIBIOTIC THERAPY
     Dosage: IVH
     Dates: start: 20150420, end: 20150421
  44. NEUTROGIN [Concomitant]
     Active Substance: LENOGRASTIM
     Indication: COLONY STIMULATING FACTOR PROPHYLAXIS
     Dosage: IVH
     Dates: start: 20150410
  45. URSA [Concomitant]
     Active Substance: URSODIOL
     Route: 048
     Dates: start: 20150705, end: 20150714
  46. DEXAMETHASONE. [Concomitant]
     Active Substance: DEXAMETHASONE
     Indication: ANTIEMETIC SUPPORTIVE CARE
     Dosage: IVH
     Dates: start: 20150702, end: 20150714
  47. TAGAMET [Concomitant]
     Active Substance: CIMETIDINE
     Indication: ULCER
     Dosage: IVH
     Dates: start: 20150410
  48. PENIRAMIN [Concomitant]
     Indication: ANTIALLERGIC THERAPY
     Route: 048
     Dates: start: 20150410, end: 20150411
  49. KLARICID [Concomitant]
     Active Substance: CLARITHROMYCIN
     Indication: ANTI-INFECTIVE THERAPY
     Route: 048
     Dates: start: 20150421, end: 20150421
  50. BISOLVON [Concomitant]
     Active Substance: BROMHEXINE HYDROCHLORIDE
     Indication: PRODUCTIVE COUGH
     Route: 048
     Dates: start: 20150422
  51. PENIRAMIN [Concomitant]
     Indication: ANTIALLERGIC THERAPY
     Dosage: IVH
  52. CIDOFOVIR. [Concomitant]
     Active Substance: CIDOFOVIR
     Route: 042
     Dates: start: 20150424, end: 20150424
  53. SMECTA [Concomitant]
     Active Substance: MONTMORILLONITE
     Indication: GASTROINTESTINAL DISORDER
     Route: 048
     Dates: start: 20150620, end: 20150626
  54. PROBENECID. [Concomitant]
     Active Substance: PROBENECID
     Indication: GOUT
     Route: 048
     Dates: start: 20150620, end: 20150620
  55. SODIUM BICARBONATE. [Concomitant]
     Active Substance: SODIUM BICARBONATE
     Dates: start: 20150713, end: 20150714
  56. KYNEX [Concomitant]
     Active Substance: SULFAMETHOXYPYRIDAZINE
     Dosage: 1 BOX,QD,DRO
     Dates: start: 20150627, end: 20150627
  57. TOBRAMYCIN. [Concomitant]
     Active Substance: TOBRAMYCIN
     Dosage: QUO
     Dates: start: 20150628, end: 20150628
  58. ULINASTATIN [Concomitant]
     Active Substance: ULINASTATIN
     Indication: CARDIOVASCULAR DISORDER
     Dates: start: 20150630, end: 20150714
  59. MUCOSTEN [Concomitant]
     Dosage: IVF
     Dates: start: 20150705, end: 20150714
  60. CLOFARABINE. [Suspect]
     Active Substance: CLOFARABINE
     Indication: ACUTE LYMPHOCYTIC LEUKAEMIA
     Route: 065
     Dates: start: 20150402, end: 20150406
  61. SOLONDO [Concomitant]
     Active Substance: PREDNISOLONE
     Indication: ACUTE LYMPHOCYTIC LEUKAEMIA
     Route: 048
     Dates: start: 20150410, end: 20150412
  62. SOLONDO [Concomitant]
     Active Substance: PREDNISOLONE
     Indication: ACUTE LYMPHOCYTIC LEUKAEMIA
     Route: 048
     Dates: start: 20150619, end: 20150620
  63. PENIRAMIN [Concomitant]
     Indication: ANTIALLERGIC THERAPY
     Route: 048
     Dates: start: 20150619, end: 20150626
  64. LASIX [Concomitant]
     Active Substance: FUROSEMIDE
     Indication: DIURETIC THERAPY
     Dosage: IVH
     Dates: start: 20150421, end: 20150421
  65. LASIX [Concomitant]
     Active Substance: FUROSEMIDE
     Indication: DIURETIC THERAPY
     Dates: start: 20150703, end: 20150703
  66. ATOCK [Concomitant]
     Active Substance: FORMOTEROL FUMARATE
     Route: 048
     Dates: start: 20150422
  67. ACETAMINOPHEN. [Concomitant]
     Active Substance: ACETAMINOPHEN
     Indication: ANALGESIC THERAPY
     Route: 048
     Dates: start: 20150418
  68. SODIUM BICARBONATE. [Concomitant]
     Active Substance: SODIUM BICARBONATE
     Dosage: IVF
     Dates: start: 20150626, end: 20150626
  69. COTRIM [Concomitant]
     Active Substance: SULFAMETHOXAZOLE\TRIMETHOPRIM
     Dosage: IVF
     Dates: start: 20150707, end: 20150707
  70. ALBUMIN [Concomitant]
     Active Substance: ALBUMIN HUMAN
     Dates: start: 20150703, end: 20150712
  71. MASI [Concomitant]
     Indication: SEIZURE
     Dosage: 10%, FM
     Dates: start: 20150629, end: 20150701
  72. ETOPOSIDE. [Suspect]
     Active Substance: ETOPOSIDE
     Indication: ACUTE LYMPHOCYTIC LEUKAEMIA
     Route: 065
     Dates: start: 20150402, end: 20150406
  73. CYCLOPHOSPHAMIDE. [Suspect]
     Active Substance: CYCLOPHOSPHAMIDE
     Indication: ACUTE LYMPHOCYTIC LEUKAEMIA
     Route: 041
     Dates: start: 20150621, end: 20150621
  74. MORPHINE SULFATE. [Concomitant]
     Active Substance: MORPHINE SULFATE
     Dosage: IVH
     Dates: start: 20150602
  75. PENIRAMIN [Concomitant]
     Indication: ANTIALLERGIC THERAPY
     Dosage: IVF
     Dates: start: 20150414, end: 20150422
  76. LASIX [Concomitant]
     Active Substance: FUROSEMIDE
     Indication: DIURETIC THERAPY
     Dates: start: 20150708, end: 20150712
  77. VARIDASE [Concomitant]
     Indication: ANTIINFLAMMATORY THERAPY
     Dosage: 0.6 T
     Route: 048
     Dates: start: 20150414, end: 20150422
  78. SEPTRIN [Concomitant]
     Active Substance: SULFAMETHOXAZOLE\TRIMETHOPRIM
     Indication: ANTIBIOTIC THERAPY
     Dosage: 0.75 T
     Route: 048
     Dates: start: 20150422, end: 20150423
  79. DIFLUCAN [Concomitant]
     Active Substance: FLUCONAZOLE
     Indication: ANTI-INFECTIVE THERAPY
     Route: 048
     Dates: start: 20150416, end: 20150418
  80. LEVOTUSS [Concomitant]
     Active Substance: LEVODROPROPIZINE
     Indication: PRODUCTIVE COUGH
     Route: 048
     Dates: start: 20150422
  81. ATIVAN [Concomitant]
     Active Substance: LORAZEPAM
     Indication: MENTAL DISORDER
     Dosage: IVF
     Dates: start: 20150619, end: 20150625
  82. SODIUM BICARBONATE. [Concomitant]
     Active Substance: SODIUM BICARBONATE
     Dosage: IVF
     Dates: start: 20150628, end: 20150628
  83. LANSTON [Concomitant]
     Active Substance: LANSOPRAZOLE
     Route: 048
     Dates: start: 20150630, end: 20150713
  84. FLUCONAZOLE. [Concomitant]
     Active Substance: FLUCONAZOLE
     Dosage: IVF
     Dates: start: 20150622, end: 20150625
  85. CLOFARABINE. [Suspect]
     Active Substance: CLOFARABINE
     Indication: ACUTE LYMPHOCYTIC LEUKAEMIA
     Dosage: DOSE: 40 MG/M2= 33 MG D1-D2, 26 MG D3
     Route: 041
     Dates: start: 20150619, end: 20150620
  86. TAPOCIN [Concomitant]
     Indication: ANTIBIOTIC THERAPY
     Dates: start: 20150630, end: 20150713
  87. LASIX [Concomitant]
     Active Substance: FUROSEMIDE
     Indication: DIURETIC THERAPY
     Dosage: IVH
     Dates: start: 20150423, end: 20150423
  88. CEFPIRAN [Concomitant]
     Indication: ANTIBIOTIC THERAPY
     Dosage: IVF
     Route: 048
     Dates: start: 20150417
  89. KLARICID [Concomitant]
     Active Substance: CLARITHROMYCIN
     Indication: ANTI-INFECTIVE THERAPY
     Dosage: IVF
     Dates: start: 20150630, end: 20150709
  90. MAGNESIUM [Concomitant]
     Active Substance: MAGNESIUM
     Indication: AMINO ACID LEVEL
     Dosage: IVF
     Dates: start: 20150619
  91. ENDOXAN [Concomitant]
     Active Substance: CYCLOPHOSPHAMIDE
     Indication: NEOPLASM MALIGNANT
     Dosage: IVF
     Dates: start: 20150619, end: 20150620
  92. UROMITEXAN [Concomitant]
     Active Substance: MESNA
     Indication: TOXICITY TO VARIOUS AGENTS
     Dosage: IVF
     Dates: start: 20150619, end: 20150625
  93. SODIUM BICARBONATE. [Concomitant]
     Active Substance: SODIUM BICARBONATE
     Dosage: IVF
     Dates: start: 20150625
  94. SODIUM BICARBONATE. [Concomitant]
     Active Substance: SODIUM BICARBONATE
     Dosage: IVF
     Dates: start: 20150627, end: 20150628
  95. PHOSTEN [Concomitant]
     Dates: start: 20150701, end: 20150703
  96. CURAN [Concomitant]
     Active Substance: RANITIDINE HYDROCHLORIDE
     Dosage: IVH
     Dates: start: 20150628
  97. LANSTON [Concomitant]
     Active Substance: LANSOPRAZOLE
     Route: 048
     Dates: start: 20150629
  98. CYCLOPHOSPHAMIDE. [Suspect]
     Active Substance: CYCLOPHOSPHAMIDE
     Indication: ACUTE LYMPHOCYTIC LEUKAEMIA
     Route: 065
     Dates: start: 20150402, end: 20150406
  99. CYCLOPHOSPHAMIDE. [Suspect]
     Active Substance: CYCLOPHOSPHAMIDE
     Indication: ACUTE LYMPHOCYTIC LEUKAEMIA
     Dosage: DOSE: 440 MG/M2= 360 MG D1-D2, 290 MG D3
     Route: 041
     Dates: start: 20150619, end: 20150620
  100. TAPOCIN [Concomitant]
     Indication: ANTIBIOTIC THERAPY
     Dosage: IVH
     Dates: start: 20150410, end: 20150412
  101. MEROPEN [Concomitant]
     Active Substance: MEROPENEM
     Indication: ANTIBIOTIC THERAPY
     Dosage: IVF
     Dates: start: 20150410, end: 20150414
  102. PULMICORT TURBUHALER [Concomitant]
     Active Substance: BUDESONIDE
     Dosage: 0.2 PACK, DRN
     Dates: start: 20150630, end: 20150711
  103. VITAMIN K [Concomitant]
     Active Substance: PHYTONADIONE
     Indication: PEPTIC ULCER
     Dosage: IVF
     Dates: start: 20150630, end: 20150713
  104. MAGNESIUM [Concomitant]
     Active Substance: MAGNESIUM
     Dosage: IVF
     Dates: start: 20150704, end: 20150709
  105. CODEINE [Concomitant]
     Active Substance: CODEINE
     Route: 048
     Dates: start: 20150630, end: 20150710
  106. SOLONDO [Concomitant]
     Active Substance: PREDNISOLONE
     Indication: ACUTE LYMPHOCYTIC LEUKAEMIA
     Route: 048
     Dates: start: 20150413, end: 20150415
  107. CANCIDAS [Concomitant]
     Active Substance: CASPOFUNGIN ACETATE
     Indication: ANTI-INFECTIVE THERAPY
     Dates: start: 20150630, end: 20150709
  108. LASIX [Concomitant]
     Active Substance: FUROSEMIDE
     Indication: DIURETIC THERAPY
     Dosage: IVH
     Dates: start: 20150410, end: 20150412
  109. PENIRAMIN [Concomitant]
     Indication: ANTIALLERGIC THERAPY
     Dosage: IVF
     Dates: start: 20150619, end: 20150625
  110. COUGH AND COLD PREPARATIONS [Concomitant]
     Active Substance: UNSPECIFIED INGREDIENT
     Indication: ANTITUSSIVE THERAPY
     Route: 048
     Dates: start: 20150414, end: 20150422
  111. MAGNESIUM [Concomitant]
     Active Substance: MAGNESIUM
     Indication: AMINO ACID LEVEL
     Dates: start: 20150704, end: 20150709

REACTIONS (8)
  - Parainfluenzae virus infection [Not Recovered/Not Resolved]
  - Mycoplasma infection [Not Recovered/Not Resolved]
  - Pleural effusion [Not Recovered/Not Resolved]
  - Hepatitis [Not Recovered/Not Resolved]
  - Pancreatitis [Not Recovered/Not Resolved]
  - Pneumonia [Not Recovered/Not Resolved]
  - BK virus infection [Not Recovered/Not Resolved]
  - Ascites [Not Recovered/Not Resolved]

NARRATIVE: CASE EVENT DATE: 20150423
